FAERS Safety Report 6161270-5 (Version None)
Quarter: 2009Q2

REPORT INFORMATION
  Report Type: 
  Country: None (occurrence: None)
  Receive Date: 20090421
  Receipt Date: 20070810
  Transmission Date: 20091009
  Serious: Yes (Hospitalization, Other)
  Sender: FDA-Public Use
  Company Number: US-ASTRAZENECA-2006UW07720

PATIENT
  Age: 14802 Day
  Sex: Female
  Weight: 59 kg

DRUGS (24)
  1. SEROQUEL [Suspect]
     Indication: DEPRESSION
     Route: 048
     Dates: start: 20030901, end: 20050301
  2. SEROQUEL [Suspect]
     Indication: INSOMNIA
     Route: 048
     Dates: start: 20030901, end: 20050301
  3. SEROQUEL [Suspect]
     Indication: ANXIETY
     Route: 048
     Dates: start: 20030901, end: 20050301
  4. SEROQUEL [Suspect]
     Route: 048
  5. SEROQUEL [Suspect]
     Route: 048
  6. SEROQUEL [Suspect]
     Route: 048
  7. SEROQUEL [Suspect]
     Dosage: 25 - 200 MG
     Route: 048
  8. SEROQUEL [Suspect]
     Dosage: 25 - 200 MG
     Route: 048
  9. SEROQUEL [Suspect]
     Dosage: 25 - 200 MG
     Route: 048
  10. EFFEXOR [Concomitant]
     Route: 048
  11. MORPHINE SULFATE [Concomitant]
  12. PAXIL [Concomitant]
  13. ATIVAN [Concomitant]
  14. VICODIN [Concomitant]
  15. LEXAPRO [Concomitant]
  16. NICOTINE [Concomitant]
  17. TRAZODONE HCL [Concomitant]
  18. ZYPREXA [Concomitant]
  19. AMBIEN [Concomitant]
  20. VISTARIL [Concomitant]
  21. ASPIRIN [Concomitant]
  22. GABAPENTIN [Concomitant]
  23. THIAMINE HCL [Concomitant]
  24. ACETAMINOPHEN [Concomitant]

REACTIONS (19)
  - ABDOMINAL PAIN [None]
  - ALCOHOL ABUSE [None]
  - ANXIETY [None]
  - ARTHRALGIA [None]
  - BACK PAIN [None]
  - BIPOLAR DISORDER [None]
  - CERVICOBRACHIAL SYNDROME [None]
  - DEPRESSED MOOD [None]
  - DIARRHOEA [None]
  - GAIT DISTURBANCE [None]
  - HYPOAESTHESIA [None]
  - INTERVERTEBRAL DISC DEGENERATION [None]
  - MAJOR DEPRESSION [None]
  - NAUSEA [None]
  - NECK PAIN [None]
  - PANCREATITIS [None]
  - ROAD TRAFFIC ACCIDENT [None]
  - SUICIDAL IDEATION [None]
  - VOMITING [None]
